FAERS Safety Report 6992507-8 (Version None)
Quarter: 2010Q3

REPORT INFORMATION
  Report Type: 
  Country: None (occurrence: None)
  Receive Date: 20100915
  Receipt Date: 20100902
  Transmission Date: 20110219
  Serious: Yes (Congenital Anomaly)
  Sender: FDA-Public Use
  Company Number: AUR-APL-2010-02172

PATIENT
  Sex: Female

DRUGS (4)
  1. LAMOTRIGINE [Suspect]
     Dosage: TRANSPLACENTAL
     Route: 064
  2. LEVETIRACETAM [Suspect]
     Dosage: TRANSPLACENTAL
     Route: 064
  3. FOLIC ACID [Concomitant]
  4. LABETALOL HCL [Concomitant]

REACTIONS (6)
  - CENTRAL NERVOUS SYSTEM LESION [None]
  - CEREBRAL CYST [None]
  - EXOMPHALOS [None]
  - FOETAL CARDIAC DISORDER [None]
  - MATERNAL DRUGS AFFECTING FOETUS [None]
  - UMBILICAL MALFORMATION [None]
